FAERS Safety Report 23806168 (Version 1)
Quarter: 2024Q2

REPORT INFORMATION
  Report Type: Spontaneous
  Country: NL (occurrence: NL)
  Receive Date: 20240502
  Receipt Date: 20240502
  Transmission Date: 20240716
  Serious: Yes (Life-Threatening, Hospitalization, Other)
  Sender: FDA-Public Use
  Company Number: NL-LRB-00967951

PATIENT
  Age: 88 Year
  Sex: Female

DRUGS (1)
  1. HYDROCHLOROTHIAZIDE [Suspect]
     Active Substance: HYDROCHLOROTHIAZIDE
     Indication: Hypertension
     Dosage: 1D1 (50 MILLIGRAM, ONCE A DAY)
     Route: 065
     Dates: start: 20240301, end: 20240304

REACTIONS (1)
  - Hypokalaemia [Recovered/Resolved]
